FAERS Safety Report 6568989-2 (Version None)
Quarter: 2010Q1

REPORT INFORMATION
  Report Type: 
  Country: None (occurrence: None)
  Receive Date: 20100203
  Receipt Date: 20100104
  Transmission Date: 20100710
  Serious: Yes (Hospitalization)
  Sender: FDA-Public Use
  Company Number: US-JNJFOC-20100201124

PATIENT
  Age: 75 Year
  Sex: Female
  Weight: 61.24 kg

DRUGS (2)
  1. TYLENOL (CAPLET) [Suspect]
  2. TYLENOL (CAPLET) [Suspect]
     Indication: ARTHRITIS

REACTIONS (3)
  - GASTRIC INFECTION [None]
  - NAUSEA [None]
  - PRODUCT QUALITY ISSUE [None]
